FAERS Safety Report 25353329 (Version 1)
Quarter: 2025Q2

REPORT INFORMATION
  Report Type: Spontaneous
  Country: US (occurrence: US)
  Receive Date: 20250523
  Receipt Date: 20250523
  Transmission Date: 20250716
  Serious: Yes (Other)
  Sender: BIOGEN
  Company Number: US-BIOGEN-2025BI01311639

PATIENT
  Sex: Female

DRUGS (1)
  1. SKYCLARYS [Suspect]
     Active Substance: OMAVELOXOLONE
     Indication: Product used for unknown indication
     Route: 050

REACTIONS (6)
  - Rib fracture [Unknown]
  - Lung perforation [Unknown]
  - Internal haemorrhage [Unknown]
  - Haematological infection [Unknown]
  - Pneumonia [Unknown]
  - Asthenia [Unknown]
